FAERS Safety Report 10055165 (Version 2)
Quarter: 2014Q2

REPORT INFORMATION
  Report Type: Spontaneous
  Country: GB (occurrence: GB)
  Receive Date: 20140402
  Receipt Date: 20140515
  Transmission Date: 20141212
  Serious: Yes (Death, Other)
  Sender: FDA-Public Use
  Company Number: GB-UCBSA-116109

PATIENT
  Age: 34 Year
  Sex: Male
  Weight: 79 kg

DRUGS (9)
  1. KEPPRA [Suspect]
     Indication: EPILEPSY
     Dosage: FOR 2 WEEKS
     Route: 048
     Dates: start: 20130605, end: 2013
  2. KEPPRA [Suspect]
     Indication: EPILEPSY
     Dosage: FOR 2 WEEKS
     Route: 048
     Dates: start: 2013, end: 2013
  3. KEPPRA [Suspect]
     Indication: EPILEPSY
     Route: 048
     Dates: start: 2013, end: 2013
  4. KEPPRA [Suspect]
     Indication: EPILEPSY
     Dosage: FOR 2 WEEKS
     Route: 048
     Dates: start: 2013, end: 2013
  5. KEPPRA [Suspect]
     Indication: EPILEPSY
     Route: 048
     Dates: start: 2013, end: 20130817
  6. PREDNISOLONE [Concomitant]
  7. CARBAMAZEPINE [Concomitant]
     Indication: CONVULSION
     Dosage: 200 MG IN THE MORNING AND 400 MG AT NIGHT, PREVIOUSLY 10 YEARS
     Dates: end: 20130605
  8. CARBAMAZEPINE [Concomitant]
     Indication: CONVULSION
     Dates: start: 2013, end: 2013
  9. CARBAMAZEPINE [Concomitant]
     Indication: CONVULSION
     Dates: start: 2013, end: 20130810

REACTIONS (2)
  - Drug reaction with eosinophilia and systemic symptoms [Fatal]
  - Pericarditis [Fatal]
